FAERS Safety Report 20112181 (Version 2)
Quarter: 2021Q4

REPORT INFORMATION
  Report Type: Spontaneous
  Country: TN (occurrence: TN)
  Receive Date: 20211125
  Receipt Date: 20211208
  Transmission Date: 20220303
  Serious: Yes (Hospitalization)
  Sender: FDA-Public Use
  Company Number: TN-NOVOPROD-868980

PATIENT
  Age: 35 Year
  Sex: Female

DRUGS (8)
  1. LANTUS [Suspect]
     Active Substance: INSULIN GLARGINE
     Indication: Type 1 diabetes mellitus
     Dosage: 22 IU
     Route: 058
     Dates: start: 2017
  2. APIDRA [Suspect]
     Active Substance: INSULIN GLULISINE
     Indication: Type 1 diabetes mellitus
     Dosage: ACCORDING TO GAD , SHE RECEIVED DOSES RANGING FROM 04 TO 08 IU
     Route: 058
     Dates: start: 2017
  3. LEVEMIR [Suspect]
     Active Substance: INSULIN DETEMIR
     Indication: Type 1 diabetes mellitus
     Dosage: 18 IU
     Route: 058
     Dates: start: 20211107, end: 20211107
  4. ISOPHANE INSULIN [Suspect]
     Active Substance: INSULIN NOS
     Indication: Type 1 diabetes mellitus
     Dosage: UNK
     Route: 058
     Dates: start: 2017
  5. ISOPHANE INSULIN [Suspect]
     Active Substance: INSULIN NOS
     Dosage: 16 IU
     Route: 058
     Dates: start: 20211108
  6. ACTRAPID [Suspect]
     Active Substance: INSULIN HUMAN
     Dosage: UNK IU
     Route: 030
     Dates: start: 20211112, end: 20211112
  7. ACTRAPID [Suspect]
     Active Substance: INSULIN HUMAN
     Indication: Type 1 diabetes mellitus
     Dosage: UNK
     Route: 030
     Dates: start: 2017
  8. NOVORAPID [Suspect]
     Active Substance: INSULIN ASPART
     Indication: Type 1 diabetes mellitus
     Dosage: ACCORIDNG TO GAD EVERY 3 HOURS SUBCUTANEOUSLY: DOSES FROM 04 TO 08 IU
     Route: 058
     Dates: start: 20211115, end: 20211115

REACTIONS (2)
  - Hypersensitivity [Not Recovered/Not Resolved]
  - Allergic reaction to excipient [Not Recovered/Not Resolved]
